FAERS Safety Report 5586831-3 (Version None)
Quarter: 2008Q1

REPORT INFORMATION
  Report Type: 
  Country: None (occurrence: None)
  Receive Date: 20080108
  Receipt Date: 20080108
  Transmission Date: 20080703
  Serious: Yes (Hospitalization)
  Sender: FDA-Public Use
  Company Number: None

PATIENT
  Sex: Male
  Weight: 81.1939 kg

DRUGS (2)
  1. DASATINIB        BMS [Suspect]
     Indication: NON-SMALL CELL LUNG CANCER
     Dosage: 200 MG
     Dates: start: 20071220, end: 20071223
  2. CETUXIMAB       BMS [Suspect]
     Indication: NON-SMALL CELL LUNG CANCER
     Dosage: 788 MG
     Dates: start: 20071221, end: 20071221

REACTIONS (4)
  - DYSPNOEA EXERTIONAL [None]
  - HYPONATRAEMIA [None]
  - PERICARDIAL EFFUSION [None]
  - RENAL FAILURE ACUTE [None]
